FAERS Safety Report 16722830 (Version 1)
Quarter: 2019Q3

REPORT INFORMATION
  Report Type: Spontaneous
  Country: IT (occurrence: IT)
  Receive Date: 20190821
  Receipt Date: 20190821
  Transmission Date: 20191005
  Serious: Yes (Hospitalization, Other)
  Sender: FDA-Public Use
  Company Number: IT-MICRO LABS LIMITED-ML2019-01966

PATIENT
  Age: 87 Year
  Sex: Female

DRUGS (6)
  1. LEVOFLOXACIN. [Suspect]
     Active Substance: LEVOFLOXACIN
  2. WARFARIN [Suspect]
     Active Substance: WARFARIN
  3. ALLOPURINOL. [Interacting]
     Active Substance: ALLOPURINOL
  4. PREDNISOLONE. [Interacting]
     Active Substance: PREDNISOLONE
  5. PANTOPRAZOLE [Interacting]
     Active Substance: PANTOPRAZOLE
  6. CEFTRIAXONE. [Interacting]
     Active Substance: CEFTRIAXONE

REACTIONS (2)
  - Melaena [Recovering/Resolving]
  - Labelled drug-drug interaction medication error [Unknown]
